FAERS Safety Report 9049711 (Version 2)
Quarter: 2013Q2

REPORT INFORMATION
  Report Type: Spontaneous
  Country: AU (occurrence: AU)
  Receive Date: 20130205
  Receipt Date: 20130417
  Transmission Date: 20140414
  Serious: No
  Sender: FDA-Public Use
  Company Number: AU-009507513-1302AUS000678

PATIENT
  Age: 42 Year
  Sex: Male
  Weight: 84 kg

DRUGS (2)
  1. SAPHRIS [Suspect]
     Dosage: 5 MG
     Route: 060
     Dates: start: 20121004
  2. LITHICARB [Concomitant]
     Dosage: 100 UNITS UNSPECIFIED

REACTIONS (4)
  - Urticaria [Recovered/Resolved]
  - Urticaria [Recovered/Resolved]
  - Pruritus [Recovered/Resolved]
  - Urinary retention [Recovered/Resolved]
